FAERS Safety Report 5467016-8 (Version None)
Quarter: 2007Q3

REPORT INFORMATION
  Report Type: 
  Country: None (occurrence: None)
  Receive Date: 20070924
  Receipt Date: 20070924
  Transmission Date: 20080115
  Serious: Yes (Hospitalization)
  Sender: FDA-Public Use
  Company Number: None

PATIENT
  Age: 68 Year
  Sex: Male

DRUGS (1)
  1. WARFARIN SODIUM [Suspect]
     Indication: HEART VALVE REPLACEMENT
     Dosage: 5 MG EVERY DAY PO
     Route: 048
     Dates: start: 20020131

REACTIONS (1)
  - INTERNATIONAL NORMALISED RATIO INCREASED [None]
